FAERS Safety Report 8281133-9 (Version None)
Quarter: 2012Q2

REPORT INFORMATION
  Report Type: 
  Country: None (occurrence: None)
  Receive Date: 20120413
  Receipt Date: 20120403
  Transmission Date: 20120825
  Serious: Yes (Hospitalization)
  Sender: FDA-Public Use
  Company Number: US-BIOGENIDEC-2012BI011600

PATIENT
  Age: 33 Year
  Sex: Female

DRUGS (1)
  1. AVONEX [Suspect]
     Indication: MULTIPLE SCLEROSIS
     Route: 030
     Dates: start: 20070516

REACTIONS (6)
  - VISION BLURRED [None]
  - COORDINATION ABNORMAL [None]
  - DIZZINESS [None]
  - BALANCE DISORDER [None]
  - MUSCULAR WEAKNESS [None]
  - DYSURIA [None]
